FAERS Safety Report 8612932-9 (Version None)
Quarter: 2012Q3

REPORT INFORMATION
  Report Type: 
  Country: None (occurrence: None)
  Receive Date: 20120822
  Receipt Date: 20120808
  Transmission Date: 20120928
  Serious: Yes (Other)
  Sender: FDA-Public Use
  Company Number: CHPA2012US017862

PATIENT
  Age: 57 Year
  Sex: Female

DRUGS (2)
  1. NICOTINE [Suspect]
     Indication: SMOKING CESSATION THERAPY
     Dosage: 21 MG, QD
     Route: 062
  2. NICOTINE [Suspect]
     Dosage: 1 PATCH DAILY DURING THE DAYTIME
     Route: 062

REACTIONS (3)
  - HALLUCINATION, AUDITORY [None]
  - ABNORMAL DREAMS [None]
  - EXPIRED DRUG ADMINISTERED [None]
